FAERS Safety Report 9886660 (Version 1)
Quarter: 2014Q1

REPORT INFORMATION
  Report Type: Spontaneous
  Country: GB (occurrence: GB)
  Receive Date: 20140210
  Receipt Date: 20140210
  Transmission Date: 20141002
  Serious: Yes (Hospitalization)
  Sender: FDA-Public Use
  Company Number: GB-WATSON-2014-02014

PATIENT
  Age: 21 Year
  Sex: Male

DRUGS (2)
  1. CHLORPHENAMINE (UNKNOWN) [Suspect]
     Indication: RASH
     Dosage: 10 MG, UNKNOWN
     Route: 042
  2. PROPOFOL-LIPURO [Suspect]
     Indication: GENERAL ANAESTHESIA
     Dosage: 200 MG, UNKNOWN
     Route: 042

REACTIONS (2)
  - Lip swelling [Recovered/Resolved]
  - Rash [Recovered/Resolved]
